FAERS Safety Report 23299190 (Version 2)
Quarter: 2024Q1

REPORT INFORMATION
  Report Type: Spontaneous
  Country: NL (occurrence: NL)
  Receive Date: 20231215
  Receipt Date: 20240215
  Transmission Date: 20240409
  Serious: Yes (Other)
  Sender: FDA-Public Use
  Company Number: NL-ROCHE-3466300

PATIENT
  Age: 46 Year
  Sex: Female

DRUGS (2)
  1. TRIAMCINOLONE ACETONIDE [Suspect]
     Active Substance: TRIAMCINOLONE ACETONIDE
     Indication: Haemangioblastoma
     Dosage: UNK
     Route: 057
  2. AVASTIN [Suspect]
     Active Substance: BEVACIZUMAB
     Indication: Haemangioblastoma
     Dosage: 1.25 MILLIGRAM, PER 0.05 ML

REACTIONS (2)
  - Disease progression [Recovering/Resolving]
  - Off label use [Unknown]
